APPROVED DRUG PRODUCT: GLYCOPYRROLATE
Active Ingredient: GLYCOPYRROLATE
Strength: 0.2MG/ML
Dosage Form/Route: INJECTABLE;INJECTION
Application: A081169 | Product #001
Applicant: TEVA PARENTERAL MEDICINES INC
Approved: Sep 10, 1991 | RLD: No | RS: No | Type: DISCN